FAERS Safety Report 16842655 (Version 2)
Quarter: 2019Q4

REPORT INFORMATION
  Report Type: Spontaneous
  Country: US (occurrence: US)
  Receive Date: 20190924
  Receipt Date: 20191004
  Transmission Date: 20200122
  Serious: No
  Sender: FDA-Public Use
  Company Number: US-CELGENEUS-USA-20190905938

PATIENT
  Age: 80 Year
  Sex: Male
  Weight: 65.38 kg

DRUGS (2)
  1. REVLIMID [Suspect]
     Active Substance: LENALIDOMIDE
     Indication: OFF LABEL USE
  2. REVLIMID [Suspect]
     Active Substance: LENALIDOMIDE
     Indication: DIFFUSE LARGE B-CELL LYMPHOMA
     Dosage: 20 MILLIGRAM?AT BED TIME
     Route: 048
     Dates: start: 20190829

REACTIONS (10)
  - Joint swelling [Unknown]
  - Peripheral swelling [Unknown]
  - Productive cough [Unknown]
  - Fatigue [Unknown]
  - Body temperature increased [Unknown]
  - Balance disorder [Unknown]
  - Asthenia [Unknown]
  - Night sweats [Unknown]
  - Aphonia [Unknown]
  - Rash pruritic [Unknown]

NARRATIVE: CASE EVENT DATE: 2019
